FAERS Safety Report 15248426 (Version 2)
Quarter: 2018Q3

REPORT INFORMATION
  Report Type: Report from Study
  Country: US (occurrence: US)
  Receive Date: 20180807
  Receipt Date: 20180815
  Transmission Date: 20181010
  Serious: No
  Sender: FDA-Public Use
  Company Number: US-SA-2018SA191508

PATIENT
  Age: 27 Year
  Sex: Female

DRUGS (10)
  1. METHOTREXATE. [Suspect]
     Active Substance: METHOTREXATE
     Indication: RHEUMATOID ARTHRITIS
     Dosage: 5 MG; TWICE A WEEK
     Route: 003
     Dates: start: 20110715
  2. METHOTREXATE. [Suspect]
     Active Substance: METHOTREXATE
     Indication: PROPHYLAXIS
     Dosage: 10 MG; TWICE A WEEK
     Route: 058
     Dates: start: 20101203, end: 20110607
  3. PREDNISONE. [Concomitant]
     Active Substance: PREDNISONE
     Indication: PROPHYLAXIS
     Dosage: 5 MG, QD
     Route: 048
     Dates: start: 20100318, end: 20111102
  4. SARILUMAB [Suspect]
     Active Substance: SARILUMAB
     Indication: RHEUMATOID ARTHRITIS
     Dosage: UNK
     Route: 058
     Dates: start: 20110519
  5. PREDNISONE. [Concomitant]
     Active Substance: PREDNISONE
     Dosage: 3 UNK
     Route: 048
     Dates: start: 20120418, end: 20120928
  6. FOLIC ACID. [Suspect]
     Active Substance: FOLIC ACID
     Indication: RHEUMATOID ARTHRITIS
     Dosage: 3 MG; 5 TIMES A WEEK
     Route: 048
     Dates: start: 20110517, end: 20110712
  7. PREDNISONE. [Concomitant]
     Active Substance: PREDNISONE
     Dosage: 2 UNK
     Route: 048
     Dates: start: 20120102, end: 20120124
  8. FOLIC ACID. [Suspect]
     Active Substance: FOLIC ACID
     Indication: PROPHYLAXIS
     Dosage: 4 MG, Q5W
     Route: 048
     Dates: start: 20110715
  9. PREDNISONE. [Concomitant]
     Active Substance: PREDNISONE
     Dosage: 4 UNK
     Route: 048
     Dates: start: 20111103, end: 20120101
  10. PREDNISONE. [Concomitant]
     Active Substance: PREDNISONE
     Dosage: 5 UNK
     Route: 048
     Dates: start: 20120929

REACTIONS (1)
  - Pharyngitis streptococcal [Recovered/Resolved]

NARRATIVE: CASE EVENT DATE: 20110420
